FAERS Safety Report 10307071 (Version 1)
Quarter: 2014Q3

REPORT INFORMATION
  Report Type: Spontaneous
  Country: FR (occurrence: FR)
  Receive Date: 20140716
  Receipt Date: 20140716
  Transmission Date: 20150326
  Serious: Yes (Hospitalization)
  Sender: FDA-Public Use
  Company Number: FR-ROCHE-1433908

PATIENT
  Age: 26 Year
  Sex: Male

DRUGS (5)
  1. AMIKLIN [Concomitant]
     Active Substance: AMIKACIN SULFATE
  2. MALOCIDE [Suspect]
     Active Substance: PYRIMETHAMINE
     Indication: TOXOPLASMOSIS
     Route: 048
     Dates: start: 2012, end: 20130131
  3. ROVALCYTE [Suspect]
     Active Substance: VALGANCICLOVIR HYDROCHLORIDE
     Indication: CYTOMEGALOVIRUS COLITIS
     Route: 048
     Dates: start: 201212, end: 20130203
  4. ADIAZINE [Suspect]
     Active Substance: SULFADIAZINE
     Indication: TOXOPLASMOSIS
     Route: 048
     Dates: start: 201212, end: 20130131
  5. TIENAM [Concomitant]
     Active Substance: CILASTATIN SODIUM\IMIPENEM

REACTIONS (2)
  - Neutropenia [Recovered/Resolved]
  - Lymphopenia [Recovered/Resolved]

NARRATIVE: CASE EVENT DATE: 201301
